FAERS Safety Report 24991496 (Version 1)
Quarter: 2025Q1

REPORT INFORMATION
  Report Type: Spontaneous
  Country: US (occurrence: US)
  Receive Date: 20250220
  Receipt Date: 20250220
  Transmission Date: 20250408
  Serious: Yes (Death, Other)
  Sender: FRESENIUS KABI
  Company Number: US-FreseniusKabi-FK202502550

PATIENT

DRUGS (2)
  1. HYDROMORPHONE HCL [Suspect]
     Active Substance: HYDROMORPHONE HYDROCHLORIDE
     Indication: Product used for unknown indication
     Route: 058
  2. CEFTAZIDIME [Concomitant]
     Active Substance: CEFTAZIDIME
     Indication: Product used for unknown indication

REACTIONS (7)
  - Unresponsive to stimuli [Fatal]
  - Wrong product administered [Unknown]
  - Product storage error [Unknown]
  - Product dispensing error [Unknown]
  - Product selection error [Unknown]
  - Product preparation error [Unknown]
  - Medication error in transfer of care [Unknown]
